FAERS Safety Report 6551937-9 (Version None)
Quarter: 2010Q1

REPORT INFORMATION
  Report Type: 
  Country: None (occurrence: None)
  Receive Date: 20100120
  Receipt Date: 20100104
  Transmission Date: 20100710
  Serious: Yes (Other)
  Sender: FDA-Public Use
  Company Number: 2010-0054

PATIENT
  Age: 11 Year
  Sex: Male

DRUGS (1)
  1. DYSPORT (BOTULINUM TOXIN TYPE A)ABOBUTULINIUM TOXIN A [Suspect]
     Indication: SALIVARY HYPERSECRETION

REACTIONS (2)
  - ASPIRATION [None]
  - DYSPHAGIA [None]
